FAERS Safety Report 5721819-0 (Version None)
Quarter: 2008Q2

REPORT INFORMATION
  Report Type: 
  Country: None (occurrence: None)
  Receive Date: 20080429
  Receipt Date: 20070517
  Transmission Date: 20081010
  Serious: No
  Sender: FDA-Public Use
  Company Number: US-ASTRAZENECA-2007UW12696

PATIENT
  Age: 32 Year

DRUGS (3)
  1. NEXIUM [Suspect]
     Indication: BARRETT'S OESOPHAGUS
     Route: 048
     Dates: start: 20040101
  2. NEXIUM [Suspect]
     Route: 048
  3. PEPCID [Concomitant]

REACTIONS (3)
  - CHEST DISCOMFORT [None]
  - OESOPHAGEAL PAIN [None]
  - SENSATION OF FOREIGN BODY [None]
